FAERS Safety Report 17994488 (Version 2)
Quarter: 2020Q3

REPORT INFORMATION
  Report Type: Spontaneous
  Country: CA (occurrence: CA)
  Receive Date: 20200708
  Receipt Date: 20200801
  Transmission Date: 20201103
  Serious: Yes (Hospitalization)
  Sender: FDA-Public Use
  Company Number: CA-ACCORD-188717

PATIENT
  Age: 3 Year
  Sex: Female

DRUGS (19)
  1. ANAKINRA [Suspect]
     Active Substance: ANAKINRA
     Indication: JUVENILE IDIOPATHIC ARTHRITIS
     Dosage: 1 EVERY 1 DAYS
     Route: 058
  2. ORENCIA [Suspect]
     Active Substance: ABATACEPT
     Indication: JUVENILE IDIOPATHIC ARTHRITIS
     Dosage: 1 EVERY 1 MONTHS
     Route: 042
  3. METHOTREXATE. [Suspect]
     Active Substance: METHOTREXATE
     Indication: JUVENILE IDIOPATHIC ARTHRITIS
     Dosage: 12 EVERY 2 WEEKS
     Route: 058
  4. TRIAMCINOLONE [Concomitant]
     Active Substance: TRIAMCINOLONE
     Indication: JUVENILE IDIOPATHIC ARTHRITIS
     Route: 065
  5. ACTEMRA [Suspect]
     Active Substance: TOCILIZUMAB
     Indication: JUVENILE IDIOPATHIC ARTHRITIS
     Dosage: 1 EVERY 2 WEEKS
     Route: 042
  6. ACTEMRA [Suspect]
     Active Substance: TOCILIZUMAB
     Indication: JUVENILE IDIOPATHIC ARTHRITIS
     Dosage: 1 EVERY 1 WEEKS
     Route: 042
  7. ORENCIA [Suspect]
     Active Substance: ABATACEPT
     Indication: JUVENILE IDIOPATHIC ARTHRITIS
     Dosage: 1 EVERY 1 MINUTES
     Route: 042
  8. METHOTREXATE. [Suspect]
     Active Substance: METHOTREXATE
     Indication: JUVENILE IDIOPATHIC ARTHRITIS
     Dosage: 1 EVERY 2 WEEKS
  9. HUMIRA [Suspect]
     Active Substance: ADALIMUMAB
     Indication: JUVENILE IDIOPATHIC ARTHRITIS
     Route: 058
  10. ENBREL [Suspect]
     Active Substance: ETANERCEPT
     Indication: JUVENILE IDIOPATHIC ARTHRITIS
     Dosage: 1 EVERY 1 WEEKS
     Route: 065
  11. PREDNISONE. [Suspect]
     Active Substance: PREDNISONE
     Indication: JUVENILE IDIOPATHIC ARTHRITIS
     Dosage: 2 EVERY 1 DAYS
     Route: 048
  12. ENBREL [Suspect]
     Active Substance: ETANERCEPT
     Indication: JUVENILE IDIOPATHIC ARTHRITIS
     Dosage: 1 EVERY 1 WEEKS
     Route: 065
  13. HYDROXYCHLOROQUINE [Suspect]
     Active Substance: HYDROXYCHLOROQUINE
     Indication: JUVENILE IDIOPATHIC ARTHRITIS
     Route: 048
  14. INFLIXIMAB [Suspect]
     Active Substance: INFLIXIMAB
     Indication: JUVENILE IDIOPATHIC ARTHRITIS
     Dosage: 1 EVERY 1 WEEKS
     Route: 042
  15. NAPROXEN. [Suspect]
     Active Substance: NAPROXEN
     Indication: JUVENILE IDIOPATHIC ARTHRITIS
  16. SULFASALAZINE. [Suspect]
     Active Substance: SULFASALAZINE
     Indication: JUVENILE IDIOPATHIC ARTHRITIS
     Dosage: 1 EVERY 1 DAYS
     Route: 048
  17. TRIAMCINOLONE [Suspect]
     Active Substance: TRIAMCINOLONE
     Indication: JUVENILE IDIOPATHIC ARTHRITIS
     Route: 050
  18. IMMUNOGLOBULIN (IMMUNOGLOBULIN G HUMAN) [Suspect]
     Active Substance: HUMAN IMMUNOGLOBULIN G
     Indication: JUVENILE IDIOPATHIC ARTHRITIS
     Route: 042
  19. ANAKINRA [Suspect]
     Active Substance: ANAKINRA
     Indication: JUVENILE IDIOPATHIC ARTHRITIS
     Route: 058

REACTIONS (22)
  - Arthropathy [Not Recovered/Not Resolved]
  - Body height below normal [Not Recovered/Not Resolved]
  - Diarrhoea [Not Recovered/Not Resolved]
  - Mobility decreased [Not Recovered/Not Resolved]
  - Drug specific antibody [Unknown]
  - Polyarthritis [Not Recovered/Not Resolved]
  - Synovitis [Not Recovered/Not Resolved]
  - Adrenal insufficiency [Not Recovered/Not Resolved]
  - Condition aggravated [Not Recovered/Not Resolved]
  - C-reactive protein increased [Not Recovered/Not Resolved]
  - Drug ineffective [Unknown]
  - Drug intolerance [Unknown]
  - Obesity [Not Recovered/Not Resolved]
  - Septic shock [Not Recovered/Not Resolved]
  - Bone density decreased [Not Recovered/Not Resolved]
  - Nausea [Not Recovered/Not Resolved]
  - Red blood cell sedimentation rate increased [Not Recovered/Not Resolved]
  - Juvenile idiopathic arthritis [Not Recovered/Not Resolved]
  - Vomiting [Not Recovered/Not Resolved]
  - Dizziness [Not Recovered/Not Resolved]
  - Human antichimeric antibody positive [Not Recovered/Not Resolved]
  - Psoriasis [Not Recovered/Not Resolved]
